FAERS Safety Report 12239400 (Version 2)
Quarter: 2017Q2

REPORT INFORMATION
  Report Type: Spontaneous
  Country: BR (occurrence: BR)
  Receive Date: 20160405
  Receipt Date: 20170425
  Transmission Date: 20170830
  Serious: Yes (Other)
  Sender: FDA-Public Use
  Company Number: BR-PFIZER INC-2016190522

PATIENT
  Age: 47 Year
  Sex: Female
  Weight: 96.4 kg

DRUGS (7)
  1. GLIFAGE XR [Concomitant]
     Active Substance: METFORMIN HYDROCHLORIDE
     Indication: BLOOD GLUCOSE INCREASED
     Dosage: 500 MG, UNK
  2. PROPRANOLOL HCL [Concomitant]
     Active Substance: PROPRANOLOL HYDROCHLORIDE
     Indication: TREMOR
     Dosage: 40 MG, UNK
  3. DOSTINEX [Suspect]
     Active Substance: CABERGOLINE
     Indication: BLOOD PROLACTIN INCREASED
     Dosage: 0.5 MG, EVERY 5 DAYS
     Route: 048
     Dates: start: 201511
  4. EZOBLOC [Concomitant]
     Active Substance: ESOMEPRAZOLE
     Indication: GASTRITIS
     Dosage: 20 MG, UNK
  5. SIMVASTATIN. [Concomitant]
     Active Substance: SIMVASTATIN
     Dosage: 40 MG, UNK
  6. DOSTINEX [Suspect]
     Active Substance: CABERGOLINE
     Dosage: 0.5 MG, EVERY 12 DAYS
  7. STILNOX [Concomitant]
     Active Substance: ZOLPIDEM TARTRATE
     Indication: SLEEP DISORDER
     Dosage: 10 MG, UNK

REACTIONS (1)
  - Pneumonia influenzal [Unknown]
